FAERS Safety Report 25125174 (Version 1)
Quarter: 2025Q1

REPORT INFORMATION
  Report Type: Spontaneous
  Country: US (occurrence: US)
  Receive Date: 20250326
  Receipt Date: 20250326
  Transmission Date: 20250409
  Serious: No
  Sender: IPSEN BIOPHARMACEUTICALS, INC.
  Company Number: US-IPSEN Group, Research and Development-2025-06808

PATIENT
  Sex: Female

DRUGS (6)
  1. IQIRVO [Suspect]
     Active Substance: ELAFIBRANOR
     Indication: Product used for unknown indication
     Route: 048
     Dates: start: 20241113
  2. FENOFIBRATE [Concomitant]
     Active Substance: FENOFIBRATE
  3. PANTOPRAZOLE [Concomitant]
     Active Substance: PANTOPRAZOLE
  4. SAVELLA [Concomitant]
     Active Substance: MILNACIPRAN HYDROCHLORIDE
  5. TRAZODONE [Concomitant]
     Active Substance: TRAZODONE HYDROCHLORIDE
  6. URSODIOL [Concomitant]
     Active Substance: URSODIOL

REACTIONS (3)
  - Headache [Unknown]
  - Dizziness [Unknown]
  - Product dose omission issue [Unknown]
